FAERS Safety Report 4331285-8 (Version None)
Quarter: 2004Q1

REPORT INFORMATION
  Report Type: 
  Country: None (occurrence: None)
  Receive Date: 20040331
  Receipt Date: 20040209
  Transmission Date: 20041129
  Serious: Yes (Hospitalization, Disabling, Other)
  Sender: FDA-Public Use
  Company Number: EWC040338378

PATIENT
  Sex: Male

DRUGS (1)
  1. HUMATROPE [Suspect]
     Indication: GROWTH HORMONE DEFICIENCY
     Dates: start: 20000101

REACTIONS (5)
  - BLINDNESS [None]
  - BRAIN DAMAGE [None]
  - NEOPLASM GROWTH ACCELERATED [None]
  - PITUITARY TUMOUR [None]
  - POST PROCEDURAL COMPLICATION [None]
